FAERS Safety Report 5249795-8 (Version None)
Quarter: 2007Q1

REPORT INFORMATION
  Report Type: 
  Country: None (occurrence: None)
  Receive Date: 20070228
  Receipt Date: 20070219
  Transmission Date: 20070707
  Serious: Yes (Hospitalization)
  Sender: FDA-Public Use
  Company Number: DE-AMGEN-UK211642

PATIENT
  Age: 66 Year
  Sex: Female

DRUGS (2)
  1. NEUPOGEN [Suspect]
     Route: 058
     Dates: start: 20070131
  2. CIPROFLOXACIN HCL [Suspect]
     Dates: start: 20070131

REACTIONS (3)
  - LEUKOPENIA [None]
  - MALAISE [None]
  - PYREXIA [None]
